FAERS Safety Report 26204111 (Version 1)
Quarter: 2025Q4

REPORT INFORMATION
  Report Type: Report from Study
  Country: US (occurrence: None)
  Receive Date: 20251226
  Receipt Date: 20251226
  Transmission Date: 20260118
  Serious: Yes (Other)
  Sender: UCB
  Company Number: US-UCBSA-2024059040

PATIENT
  Weight: 47.9 kg

DRUGS (15)
  1. FENFLURAMINE [Suspect]
     Active Substance: FENFLURAMINE
     Indication: Severe myoclonic epilepsy of infancy
     Dosage: 5.9 MILLILITER, 2X/DAY (BID)
  2. FENFLURAMINE [Suspect]
     Active Substance: FENFLURAMINE
     Dosage: 5 MILLILITER, 2X/DAY (BID)
     Route: 061
  3. SEROQUEL [Concomitant]
     Active Substance: QUETIAPINE FUMARATE
     Indication: Product used for unknown indication
     Dosage: UNK, TAKE 1 TABLET BY MOUTH IN THE MORNING AND TAKE 2.5 TABLETS AT BEDTIME
     Route: 061
  4. ONFI [Concomitant]
     Active Substance: CLOBAZAM
     Indication: Product used for unknown indication
     Dosage: UNK, GIVE 3 MILLILITER BY MOUTH EVERY MORNING AND 3 MILLILITER BY MOUTH IN THE AFTERNOON AND 6 MILLILITER EVERY EVENING
     Route: 061
  5. VALPROIC ACID [Concomitant]
     Active Substance: VALPROIC ACID
     Indication: Product used for unknown indication
     Dosage: UNK, GIVE 7.5-MILLILITER BY MOUTH EVERY MORNING THEN 12.5 MILLILITER BY MOUTH EVERY EVENING
     Route: 061
  6. COGENTIN [Concomitant]
     Active Substance: BENZTROPINE MESYLATE
     Indication: Product used for unknown indication
     Dosage: 1 MILLIGRAM, 2X/DAY (BID)
     Route: 061
  7. ATIVAN [Concomitant]
     Active Substance: LORAZEPAM
     Indication: Anxiety
     Dosage: 1 MILLIGRAM, AS NEEDED (PRN)
     Route: 061
  8. ATIVAN [Concomitant]
     Active Substance: LORAZEPAM
     Indication: Restlessness
     Dosage: 1.5 MILLIGRAM, AS NEEDED (PRN)
     Route: 061
  9. SEPTRA [Concomitant]
     Active Substance: SULFAMETHOXAZOLE\TRIMETHOPRIM
     Indication: Product used for unknown indication
     Dosage: 20 MILLILITER, 2X/DAY (BID)
     Route: 061
  10. CARNITOR [Concomitant]
     Active Substance: LEVOCARNITINE
     Indication: Product used for unknown indication
     Dosage: 3 MILLILITER, ONCE DAILY (QD)
     Route: 061
  11. LEVOTHYROXINE [Concomitant]
     Active Substance: LEVOTHYROXINE
     Indication: Product used for unknown indication
     Dosage: UNK, TAKE 1/2 (HALF) TABLET BY MOUTH DAILY
     Route: 061
  12. POLYETHYLENE GLYCOLS [Concomitant]
     Active Substance: POLYETHYLENE GLYCOLS
     Indication: Product used for unknown indication
     Dosage: POWDER, TAKE ONE CAPFUL VIA G-TUBE DAILY
  13. MUPIROCIN [Concomitant]
     Active Substance: MUPIROCIN
     Indication: Product used for unknown indication
     Dosage: UNK, ONE APPLICATION TO AFFECTED AREA(S) TWICE DAILY APPLY SMALL AMOUNT TO G TUBE AREA 2X DAILY X 10 DAYS
     Route: 048
  14. NAYZILAM [Concomitant]
     Active Substance: MIDAZOLAM
     Indication: Seizure cluster
     Dosage: UNK, APPLY ONE SPRAY NASALLY AS DIRECTED AS DIRECTED AS NEEDED (SEIZURE CLUSTER} 1-2 MIN)
  15. MYCOSTATIN [Concomitant]
     Active Substance: NYSTATIN
     Indication: Product used for unknown indication
     Dosage: UNK,1 APPLICATION TO AFFECTED AREA,2X/DAY (BID)

REACTIONS (2)
  - Parkinson^s disease [Not Recovered/Not Resolved]
  - Pulmonary valve incompetence [Unknown]
